FAERS Safety Report 8142929-7 (Version None)
Quarter: 2012Q1

REPORT INFORMATION
  Report Type: 
  Country: None (occurrence: None)
  Receive Date: 20120217
  Receipt Date: 20120210
  Transmission Date: 20120608
  Serious: Yes (Other)
  Sender: FDA-Public Use
  Company Number: US-BIOGENIDEC-2012BI005605

PATIENT
  Sex: Male

DRUGS (2)
  1. AVONEX [Suspect]
     Indication: MULTIPLE SCLEROSIS
     Route: 030
     Dates: start: 20090517, end: 20100101
  2. VITAMIN B-12 [Concomitant]
     Indication: GASTRIC BYPASS

REACTIONS (8)
  - MYELODYSPLASTIC SYNDROME [None]
  - PAIN [None]
  - WHITE BLOOD CELL COUNT DECREASED [None]
  - PLATELET COUNT DECREASED [None]
  - LYMPHADENOPATHY [None]
  - WEIGHT DECREASED [None]
  - PANCREATITIS [None]
  - FALL [None]
